FAERS Safety Report 24440993 (Version 2)
Quarter: 2024Q4

REPORT INFORMATION
  Report Type: Report from Study
  Country: US (occurrence: US)
  Receive Date: 20241016
  Receipt Date: 20241017
  Transmission Date: 20250114
  Serious: No
  Sender: ROCHE
  Company Number: US-ROCHE-3468754

PATIENT
  Age: 3 Year
  Sex: Male
  Weight: 17.5 kg

DRUGS (2)
  1. HEMLIBRA [Suspect]
     Active Substance: EMICIZUMAB-KXWH
     Indication: Factor VIII deficiency
     Route: 058
     Dates: start: 202010
  2. HEMLIBRA [Suspect]
     Active Substance: EMICIZUMAB-KXWH
     Indication: Factor VIII deficiency
     Route: 058
     Dates: start: 20220601, end: 20220823

REACTIONS (5)
  - Speech disorder developmental [Unknown]
  - Gait disturbance [Unknown]
  - Joint hyperextension [Unknown]
  - Hypermobility syndrome [Unknown]
  - Fall [Unknown]
